FAERS Safety Report 17094050 (Version 1)
Quarter: 2019Q4

REPORT INFORMATION
  Report Type: Report from Study
  Country: IT (occurrence: IT)
  Receive Date: 20191129
  Receipt Date: 20191129
  Transmission Date: 20200122
  Serious: Yes (Hospitalization, Other)
  Sender: FDA-Public Use
  Company Number: IT-MYLANLABS-2019M1112112

PATIENT
  Age: 80 Year
  Sex: Female

DRUGS (8)
  1. LASIX [Suspect]
     Active Substance: FUROSEMIDE
     Indication: HYPERTENSION
     Dosage: 300 MILLIGRAM, TOTAL
     Route: 048
     Dates: start: 20190409, end: 20190409
  2. STILNOX [Suspect]
     Active Substance: ZOLPIDEM TARTRATE
     Indication: INSOMNIA
     Dosage: 60 MILLIGRAM, TOTAL
     Route: 048
     Dates: start: 20190409, end: 20190409
  3. INSULIN [Concomitant]
     Active Substance: INSULIN NOS
     Dosage: UNK
  4. PAROXETINE. [Suspect]
     Active Substance: PAROXETINE
     Indication: DEPRESSION
     Dosage: 120 MILLIGRAM, TOTAL
     Route: 048
     Dates: start: 20190409, end: 20190409
  5. SEROQUEL [Suspect]
     Active Substance: QUETIAPINE FUMARATE
     Indication: PERSONALITY DISORDER
     Dosage: 1200 MILLIGRAM, TOTAL
     Route: 048
     Dates: start: 20190409, end: 20190409
  6. GABAPENTIN ALMUS [Suspect]
     Active Substance: GABAPENTIN
     Indication: DIABETIC NEUROPATHY
     Dosage: 7200 MILLIGRAM, TOTAL
     Route: 048
     Dates: start: 20190409, end: 20190409
  7. TICLOPIDINE [Suspect]
     Active Substance: TICLOPIDINE
     Indication: TRANSIENT ISCHAEMIC ATTACK
     Dosage: 3000 MILLIGRAM, TOTAL
     Route: 048
     Dates: start: 20190409, end: 20190409
  8. RANITIDINA DOC [Suspect]
     Active Substance: RANITIDINE HYDROCHLORIDE
     Indication: HYPERCHLORHYDRIA
     Dosage: 450 MILLIGRAM, TOTAL
     Route: 048
     Dates: start: 20190409, end: 20190409

REACTIONS (4)
  - Sopor [Recovering/Resolving]
  - Drug abuse [Unknown]
  - Intentional product misuse [Unknown]
  - Depressed level of consciousness [Recovering/Resolving]

NARRATIVE: CASE EVENT DATE: 20190409
